FAERS Safety Report 24828687 (Version 1)
Quarter: 2025Q1

REPORT INFORMATION
  Report Type: Report from Study
  Country: US (occurrence: US)
  Receive Date: 20250110
  Receipt Date: 20250110
  Transmission Date: 20250408
  Serious: Yes (Hospitalization)
  Sender: ROCHE
  Company Number: US-ROCHE-10000172313

PATIENT
  Age: 36 Year
  Sex: Male

DRUGS (3)
  1. ACTEMRA [Suspect]
     Active Substance: TOCILIZUMAB
     Indication: Encephalitis
     Route: 065
  2. ACTEMRA [Suspect]
     Active Substance: TOCILIZUMAB
     Indication: Myelitis
  3. ACTEMRA [Suspect]
     Active Substance: TOCILIZUMAB
     Indication: Encephalitis

REACTIONS (1)
  - Ill-defined disorder [Unknown]
